FAERS Safety Report 18011646 (Version 25)
Quarter: 2025Q2

REPORT INFORMATION
  Report Type: Report from Study
  Country: US (occurrence: US)
  Receive Date: 20200713
  Receipt Date: 20250609
  Transmission Date: 20250716
  Serious: Yes (Other)
  Sender: TAKEDA
  Company Number: US-SHIRE-US202022268

PATIENT
  Age: 74 Year
  Sex: Female
  Weight: 63 kg

DRUGS (40)
  1. HUMAN IMMUNOGLOBULIN G [Suspect]
     Active Substance: HUMAN IMMUNOGLOBULIN G
     Indication: Immunodeficiency common variable
     Dosage: 7 GRAM, 1/WEEK
     Dates: start: 20190917
  2. HUMAN IMMUNOGLOBULIN G [Suspect]
     Active Substance: HUMAN IMMUNOGLOBULIN G
     Dosage: 7 GRAM, 1/WEEK
  3. CYCLOBENZAPRINE [Concomitant]
     Active Substance: CYCLOBENZAPRINE
  4. MELOXICAM [Concomitant]
     Active Substance: MELOXICAM
  5. DEXPANTHENOL [Concomitant]
     Active Substance: DEXPANTHENOL
  6. XOPENEX [Concomitant]
     Active Substance: LEVALBUTEROL HYDROCHLORIDE
  7. ACETAMINOPHEN [Concomitant]
     Active Substance: ACETAMINOPHEN
  8. DIPHENHYDRAMINE [Concomitant]
     Active Substance: DIPHENHYDRAMINE
  9. EPINEPHRINE [Concomitant]
     Active Substance: EPINEPHRINE
  10. ALIGN [Concomitant]
     Active Substance: BIFIDOBACTERIUM LONGUM SUBSP. INFANTIS
  11. ATORVASTATIN [Concomitant]
     Active Substance: ATORVASTATIN
  12. SYMBICORT [Concomitant]
     Active Substance: BUDESONIDE\FORMOTEROL FUMARATE DIHYDRATE
  13. BUPROPION [Concomitant]
     Active Substance: BUPROPION
  14. DIVALPROEX SODIUM [Concomitant]
     Active Substance: DIVALPROEX SODIUM
  15. FLUTICASONE PROPIONATE [Concomitant]
     Active Substance: FLUTICASONE PROPIONATE
  16. MONTELUKAST [Concomitant]
     Active Substance: MONTELUKAST
  17. ASPIRIN [Concomitant]
     Active Substance: ASPIRIN
  18. VITAMIN E [Concomitant]
     Active Substance: .ALPHA.-TOCOPHEROL
  19. VITAMIN B [Concomitant]
     Active Substance: VITAMIN B
  20. CALCIUM CITRATE [Concomitant]
     Active Substance: CALCIUM CITRATE
  21. AZELASTINE [Concomitant]
     Active Substance: AZELASTINE
  22. RAGWITEK [Concomitant]
     Active Substance: AMBROSIA ARTEMISIIFOLIA POLLEN
  23. IMMUNE SUPPORT [Concomitant]
  24. RANEXA [Concomitant]
     Active Substance: RANOLAZINE
  25. KIRKLAND SIGNATURE ALLER FEX [Concomitant]
     Active Substance: FEXOFENADINE HYDROCHLORIDE
  26. BUDESONIDE [Concomitant]
     Active Substance: BUDESONIDE
  27. Citracal plus d [Concomitant]
  28. NITROSTAT [Concomitant]
     Active Substance: NITROGLYCERIN
  29. METRONIDAZOLE [Concomitant]
     Active Substance: METRONIDAZOLE
  30. Lmx [Concomitant]
  31. FEXOFENADINE HYDROCHLORIDE [Concomitant]
     Active Substance: FEXOFENADINE HYDROCHLORIDE
  32. LEVALBUTEROL [Concomitant]
     Active Substance: LEVALBUTEROL
  33. ATORVASTATIN CALCIUM [Concomitant]
     Active Substance: ATORVASTATIN CALCIUM
  34. LEVALBUTEROL TARTRATE [Concomitant]
     Active Substance: LEVALBUTEROL TARTRATE
  35. MONTELUKAST SODIUM [Concomitant]
     Active Substance: MONTELUKAST SODIUM
  36. DIPHENHYDRAMINE HYDROCHLORIDE [Concomitant]
     Active Substance: DIPHENHYDRAMINE HYDROCHLORIDE
  37. DIVALPROEX SODIUM [Concomitant]
     Active Substance: DIVALPROEX SODIUM
  38. FLUTICASONE [Concomitant]
     Active Substance: FLUTICASONE
  39. FEXOFENADINE [Concomitant]
     Active Substance: FEXOFENADINE HYDROCHLORIDE
  40. BUPROPION HYDROCHLORIDE XL [Concomitant]
     Active Substance: BUPROPION HYDROCHLORIDE

REACTIONS (19)
  - Lower respiratory tract infection [Unknown]
  - Infusion site irritation [Unknown]
  - Bronchitis [Unknown]
  - Allergy to plants [Unknown]
  - Arthritis [Unknown]
  - Urinary tract infection [Unknown]
  - COVID-19 [Unknown]
  - Eye infection [Recovering/Resolving]
  - Incorrect drug administration rate [Unknown]
  - Gastrointestinal infection [Unknown]
  - Haematoma [Unknown]
  - Upper respiratory tract infection [Unknown]
  - Infusion site haemorrhage [Unknown]
  - Sinusitis [Not Recovered/Not Resolved]
  - Infusion site bruising [Unknown]
  - Infusion site discomfort [Recovering/Resolving]
  - Malaise [Unknown]
  - Infusion site pain [Unknown]
  - Influenza [Not Recovered/Not Resolved]

NARRATIVE: CASE EVENT DATE: 20221018
